FAERS Safety Report 7692404-9 (Version None)
Quarter: 2011Q3

REPORT INFORMATION
  Report Type: 
  Country: None (occurrence: None)
  Receive Date: 20110818
  Receipt Date: 20110811
  Transmission Date: 20111222
  Serious: Yes (Other)
  Sender: FDA-Public Use
  Company Number: US-US-EMD SERONO, INC.-7014261

PATIENT
  Sex: Female

DRUGS (4)
  1. REBIF [Suspect]
     Route: 058
     Dates: start: 20110328
  2. TYLENOL-500 [Concomitant]
     Indication: PREMEDICATION
  3. MOTRIN [Concomitant]
     Indication: PREMEDICATION
  4. REBIF [Suspect]
     Indication: PRODUCT USED FOR UNKNOWN INDICATION
     Route: 058
     Dates: start: 20040721, end: 20100201

REACTIONS (5)
  - INJECTION SITE ERYTHEMA [None]
  - FEELING HOT [None]
  - BREAST CANCER [None]
  - INJECTION SITE HAEMATOMA [None]
  - PAIN [None]
